FAERS Safety Report 18022104 (Version 2)
Quarter: 2020Q3

REPORT INFORMATION
  Report Type: Other
  Country: NL (occurrence: NL)
  Receive Date: 20200715
  Receipt Date: 20200722
  Transmission Date: 20201103
  Serious: Yes (Other)
  Sender: FDA-Public Use
  Company Number: NL-ROCHE-2640141

PATIENT
  Age: 22 Year
  Sex: Male

DRUGS (3)
  1. SUMATRIPTAN. [Concomitant]
     Active Substance: SUMATRIPTAN
     Indication: CLUSTER HEADACHE
  2. AMITRIPTYLINE [Suspect]
     Active Substance: AMITRIPTYLINE
     Indication: HEADACHE
     Route: 065
  3. DIAZEPAM. [Suspect]
     Active Substance: DIAZEPAM
     Indication: PRODUCT USED FOR UNKNOWN INDICATION
     Route: 065

REACTIONS (15)
  - Aneurysm [Unknown]
  - Intracranial pressure increased [Unknown]
  - Horner^s syndrome [Unknown]
  - Sedation [Recovered/Resolved]
  - Tachycardia [Recovered/Resolved]
  - Mydriasis [Unknown]
  - Altered state of consciousness [Recovered/Resolved]
  - Hypertension [Recovered/Resolved]
  - Toxicity to various agents [Unknown]
  - Psychomotor hyperactivity [Recovered/Resolved]
  - Pupils unequal [Recovering/Resolving]
  - Nerve injury [Unknown]
  - Miosis [Unknown]
  - Pupillary disorder [Recovering/Resolving]
  - Drug dependence [Unknown]
